FAERS Safety Report 24326212 (Version 2)
Quarter: 2024Q3

REPORT INFORMATION
  Report Type: Spontaneous
  Country: JP (occurrence: JP)
  Receive Date: 20240917
  Receipt Date: 20240930
  Transmission Date: 20241016
  Serious: Yes (Hospitalization, Other)
  Sender: GLAXOSMITHKLINE
  Company Number: JP-GLAXOSMITHKLINE-JP2024JPN110324

PATIENT

DRUGS (18)
  1. BENLYSTA [Suspect]
     Active Substance: BELIMUMAB
     Indication: Systemic lupus erythematosus
     Dosage: 200 MG, WE
     Route: 058
     Dates: start: 20181024, end: 20190409
  2. BENLYSTA [Suspect]
     Active Substance: BELIMUMAB
     Dosage: 200 MG, WE
     Route: 058
     Dates: start: 20190416, end: 20191022
  3. BENLYSTA [Suspect]
     Active Substance: BELIMUMAB
     Dosage: UNK
  4. PREDONINE [Suspect]
     Active Substance: PREDNISOLONE
     Indication: Systemic lupus erythematosus
     Dosage: 5 MG, QD
     Route: 048
     Dates: start: 20181024, end: 20190108
  5. PREDONINE [Suspect]
     Active Substance: PREDNISOLONE
     Dosage: 15 MG, QD
     Route: 048
     Dates: start: 20190109, end: 20190219
  6. PREDONINE [Suspect]
     Active Substance: PREDNISOLONE
     Dosage: 14 MG, QD
     Route: 048
     Dates: start: 20190220, end: 20210306
  7. PREDONINE [Suspect]
     Active Substance: PREDNISOLONE
     Dosage: 13 MG, QD
     Route: 048
     Dates: start: 20190307, end: 20190403
  8. PREDONINE [Suspect]
     Active Substance: PREDNISOLONE
     Dosage: 12 MG, QD
     Route: 048
     Dates: start: 20190404, end: 20190417
  9. PREDONINE [Suspect]
     Active Substance: PREDNISOLONE
     Dosage: 11.5 MG, QD
     Route: 048
     Dates: start: 20190418, end: 20190507
  10. PREDONINE [Suspect]
     Active Substance: PREDNISOLONE
     Dosage: 11 MG, QD
     Route: 048
     Dates: start: 20190508, end: 20190521
  11. PREDONINE [Suspect]
     Active Substance: PREDNISOLONE
     Dosage: 10.5 MG, QD
     Route: 048
     Dates: start: 20190522, end: 20190604
  12. PREDONINE [Suspect]
     Active Substance: PREDNISOLONE
     Dosage: 10 MG, QD
     Route: 048
     Dates: start: 20190605, end: 20190806
  13. PREDONINE [Suspect]
     Active Substance: PREDNISOLONE
     Dosage: 9.5 MG, QD
     Route: 048
     Dates: start: 20190807, end: 20190827
  14. PREDONINE [Suspect]
     Active Substance: PREDNISOLONE
     Dosage: 9 MG, QD
     Route: 048
     Dates: start: 20190828, end: 20191008
  15. PREDONINE [Suspect]
     Active Substance: PREDNISOLONE
     Dosage: 8.5 MG, QD
     Route: 048
     Dates: start: 20191009
  16. CELLCEPT [Suspect]
     Active Substance: MYCOPHENOLATE MOFETIL
     Indication: Systemic lupus erythematosus
     Dosage: UNK
     Dates: start: 201411, end: 201604
  17. CELLCEPT [Suspect]
     Active Substance: MYCOPHENOLATE MOFETIL
     Dosage: UNK
     Dates: start: 20171211
  18. TACROLIMUS [Suspect]
     Active Substance: TACROLIMUS
     Indication: Systemic lupus erythematosus
     Dosage: UNK
     Dates: start: 2008

REACTIONS (3)
  - Intracranial mass [Recovering/Resolving]
  - Lymphoproliferative disorder [Recovering/Resolving]
  - Immunodeficiency [Recovering/Resolving]

NARRATIVE: CASE EVENT DATE: 20210915
